FAERS Safety Report 13608282 (Version 2)
Quarter: 2017Q3

REPORT INFORMATION
  Report Type: Report from Study
  Country: JP (occurrence: JP)
  Receive Date: 20170602
  Receipt Date: 20170817
  Transmission Date: 20171127
  Serious: Yes (Death)
  Sender: FDA-Public Use
  Company Number: JP-EISAI MEDICAL RESEARCH-EC-2017-028052

PATIENT
  Age: 49 Year
  Sex: Female
  Weight: 54 kg

DRUGS (7)
  1. ZOLPIDEM TARTRATE. [Concomitant]
     Active Substance: ZOLPIDEM TARTRATE
  2. BISOLVON [Concomitant]
     Active Substance: BROMHEXINE HYDROCHLORIDE
  3. ROPION [Concomitant]
     Active Substance: FLURBIPROFEN AXETIL
  4. LOXOPROFEN [Concomitant]
     Active Substance: LOXOPROFEN
  5. MEPTIN [Concomitant]
     Active Substance: PROCATEROL HYDROCHLORIDE
  6. HALAVEN [Suspect]
     Active Substance: ERIBULIN MESYLATE
     Indication: PHYLLODES TUMOUR
     Route: 041
     Dates: start: 20160307, end: 20160315
  7. NOVAMIN (PROCHLORPERAZINE) [Concomitant]
     Active Substance: PROCHLORPERAZINE

REACTIONS (1)
  - Malignant neoplasm progression [Fatal]

NARRATIVE: CASE EVENT DATE: 20160405
